FAERS Safety Report 6801417-8 (Version None)
Quarter: 2010Q2

REPORT INFORMATION
  Report Type: 
  Country: None (occurrence: None)
  Receive Date: 20100629
  Receipt Date: 20100618
  Transmission Date: 20101027
  Serious: Yes (Hospitalization)
  Sender: FDA-Public Use
  Company Number: B0651814A

PATIENT
  Age: 72 Year
  Sex: Male

DRUGS (17)
  1. HYCAMTIN [Suspect]
     Route: 065
  2. AVELOX [Concomitant]
  3. ZOMETA [Concomitant]
  4. HYDAL [Concomitant]
  5. ENALAPRIL MALEATE [Concomitant]
  6. METOPROLOL TARTRATE [Concomitant]
  7. GLUCOPHAGE [Concomitant]
  8. AMARYL [Concomitant]
  9. NEUROMULTIVIT [Concomitant]
  10. PANTOPRAZOLE [Concomitant]
  11. SPIRIVA [Concomitant]
  12. VITAMIN D3 [Concomitant]
  13. UNKNOWN DRUG [Concomitant]
  14. PASPERTIN [Concomitant]
  15. MAGNOSOLV [Concomitant]
  16. DIPROFORTE [Concomitant]
  17. FORLAX [Concomitant]

REACTIONS (10)
  - ABDOMINAL SYMPTOM [None]
  - ANAEMIA [None]
  - ASTHENIA [None]
  - BRONCHOPNEUMONIA [None]
  - HYPOGLYCAEMIA [None]
  - INFLAMMATION [None]
  - PURPURA [None]
  - RASH [None]
  - RASH MACULAR [None]
  - VASCULITIS NECROTISING [None]
